FAERS Safety Report 10802005 (Version 1)
Quarter: 2015Q1

REPORT INFORMATION
  Report Type: Spontaneous
  Country: JP (occurrence: JP)
  Receive Date: 20150217
  Receipt Date: 20150217
  Transmission Date: 20150721
  Serious: Yes (Other)
  Sender: FDA-Public Use
  Company Number: JP-TEVA-2015-JP-000062J

PATIENT
  Sex: Male

DRUGS (1)
  1. FUROSEMIDE TABLET 40MG ^TEVA^ [Suspect]
     Active Substance: FUROSEMIDE
     Route: 065

REACTIONS (1)
  - Angina pectoris [Recovered/Resolved]

NARRATIVE: CASE EVENT DATE: 2015
